FAERS Safety Report 7233695-8 (Version None)
Quarter: 2011Q1

REPORT INFORMATION
  Report Type: 
  Country: None (occurrence: None)
  Receive Date: 20110119
  Receipt Date: 20100129
  Transmission Date: 20110831
  Serious: Yes (Hospitalization, Other)
  Sender: FDA-Public Use
  Company Number: US-TEVA-217413USA

PATIENT
  Sex: Female

DRUGS (1)
  1. COPAXONE [Suspect]
     Indication: MULTIPLE SCLEROSIS
     Route: 058
     Dates: start: 19990101, end: 20020101

REACTIONS (4)
  - HEPATIC FAILURE [None]
  - HEPATIC CIRRHOSIS [None]
  - CARDIAC FAILURE CONGESTIVE [None]
  - AUTOIMMUNE HEPATITIS [None]
